FAERS Safety Report 7939171-9 (Version None)
Quarter: 2011Q4

REPORT INFORMATION
  Report Type: 
  Country: None (occurrence: None)
  Receive Date: 20111124
  Receipt Date: 20111114
  Transmission Date: 20120403
  Serious: Yes (Death, Other)
  Sender: FDA-Public Use
  Company Number: CA-BRISTOL-MYERS SQUIBB COMPANY-16247918

PATIENT
  Age: 15 Month
  Sex: Male

DRUGS (7)
  1. ETOPOSIDE [Suspect]
  2. CARBOPLATIN [Suspect]
  3. CYCLOPHOSPHAMIDE [Suspect]
  4. METHOTREXATE [Suspect]
     Dosage: 1DF= 8 G/M2
  5. VINCRISTINE [Suspect]
     Dosage: TWO DOSES
  6. THIOTEPA [Suspect]
     Dosage: 2 DOSES
  7. CISPLATIN [Suspect]

REACTIONS (2)
  - LEUKOENCEPHALOPATHY [None]
  - ASPIRATION [None]
